FAERS Safety Report 19351240 (Version 2)
Quarter: 2021Q3

REPORT INFORMATION
  Report Type: Spontaneous
  Country: US (occurrence: US)
  Receive Date: 20210531
  Receipt Date: 20210708
  Transmission Date: 20211014
  Serious: No
  Sender: FDA-Public Use
  Company Number: US-JNJFOC-20210548653

PATIENT
  Sex: Female
  Weight: 118.04 kg

DRUGS (1)
  1. TREMFYA [Suspect]
     Active Substance: GUSELKUMAB
     Indication: PSORIATIC ARTHROPATHY
     Dosage: WEEK 0, WEEK 4, AND EVERY 8 WEEKS
     Route: 065

REACTIONS (2)
  - Device malfunction [Unknown]
  - Underdose [Unknown]
